FAERS Safety Report 5877347-5 (Version None)
Quarter: 2008Q3

REPORT INFORMATION
  Report Type: 
  Country: None (occurrence: None)
  Receive Date: 20080908
  Receipt Date: 20080829
  Transmission Date: 20090109
  Serious: Yes (Hospitalization)
  Sender: FDA-Public Use
  Company Number: GXKR2008SE08353

PATIENT
  Age: 83 Year
  Sex: Female

DRUGS (6)
  1. OMEPRAZOLE [Suspect]
     Dosage: 2 MG/DAY, ORAL
     Route: 048
     Dates: end: 20080706
  2. CITALOPRAM HYDROBROMIDE [Suspect]
     Indication: DEPRESSION
     Dosage: 20 MG/DAY, ORAL
     Route: 048
     Dates: start: 20080623, end: 20080706
  3. SPARKAL (NGX) (AMILORIDE, HYDROCHLOROTHIAZIDE) UNKNOWN [Suspect]
     Indication: HYPERTENSION
     Dosage: ORAL
     Route: 048
     Dates: start: 20050101, end: 20080706
  4. KALEROID (POTASSIUM CHLORIDE) EXTENDED RELEASE TABLET [Concomitant]
  5. SOBRIL (OXAZEPAM) TABLET [Concomitant]
  6. METOPROLOL (METOPROLOL) EXTENDED RELEASE TABLET, 50 MG [Concomitant]

REACTIONS (3)
  - FALL [None]
  - HYPOKALAEMIA [None]
  - HYPONATRAEMIA [None]
